FAERS Safety Report 8829448 (Version 1)
Quarter: 2012Q4

REPORT INFORMATION
  Report Type: 
  Country: US (occurrence: US)
  Receive Date: 20121008
  Receipt Date: 20121008
  Transmission Date: 20130627
  Serious: No
  Sender: FDA-Public Use
  Company Number: US-TEVA-344810USA

PATIENT
  Sex: Female
  Weight: 59.02 kg

DRUGS (5)
  1. QVAR [Suspect]
     Dosage: 160 Microgram Daily;
     Route: 055
     Dates: start: 20120601
  2. EZETIMIBE [Concomitant]
  3. NARINE                             /01202601/ [Concomitant]
  4. RANITIDINE HYDROCHLORIDE [Concomitant]
  5. AMLODIPINE [Concomitant]

REACTIONS (1)
  - Vulvovaginal mycotic infection [Not Recovered/Not Resolved]
